FAERS Safety Report 7611427-9 (Version None)
Quarter: 2011Q3

REPORT INFORMATION
  Report Type: 
  Country: None (occurrence: None)
  Receive Date: 20110715
  Receipt Date: 20110616
  Transmission Date: 20111222
  Serious: Yes (Other)
  Sender: FDA-Public Use
  Company Number: US-BAYER-2011-052763

PATIENT
  Age: 76 Year
  Sex: Male
  Weight: 79 kg

DRUGS (2)
  1. IBUPROFEN (ADVIL) [Suspect]
     Dosage: UNK UNK, QD
     Route: 048
     Dates: start: 20091001, end: 20101001
  2. ALEVE (CAPLET) [Suspect]
     Indication: PAIN
     Dosage: 2 DF, ONCE
     Route: 048
     Dates: start: 20091001, end: 20101001

REACTIONS (2)
  - GASTRIC HAEMORRHAGE [None]
  - GASTRIC ULCER [None]
